FAERS Safety Report 8113065-0 (Version None)
Quarter: 2012Q1

REPORT INFORMATION
  Report Type: 
  Country: None (occurrence: None)
  Receive Date: 20120203
  Receipt Date: 20100708
  Transmission Date: 20120608
  Serious: Yes (Hospitalization)
  Sender: FDA-Public Use
  Company Number: DE-GLAXOSMITHKLINE-B0665491A

PATIENT
  Sex: Female
  Weight: 58 kg

DRUGS (5)
  1. LAPATINIB [Suspect]
     Indication: BREAST CANCER
     Dosage: 1500MG PER DAY
     Route: 048
     Dates: start: 20090423
  2. CYCLOPHOSPHAMIDE [Concomitant]
     Route: 042
     Dates: start: 20091028
  3. FLUOROURACIL [Concomitant]
     Route: 042
     Dates: start: 20091028
  4. PACLITAXEL [Suspect]
     Indication: BREAST CANCER
     Dosage: 80MGM2 WEEKLY
     Route: 042
     Dates: start: 20090608
  5. EPIRUBICIN [Concomitant]
     Route: 042
     Dates: start: 20091028

REACTIONS (1)
  - NEUTROPENIA [None]
